FAERS Safety Report 8557831-6 (Version None)
Quarter: 2012Q3

REPORT INFORMATION
  Report Type: 
  Country: None (occurrence: None)
  Receive Date: 20120801
  Receipt Date: 20120724
  Transmission Date: 20120928
  Serious: Yes (Death)
  Sender: FDA-Public Use
  Company Number: US-GLAXOSMITHKLINE-A0983434A

PATIENT
  Age: 74 Year
  Sex: Female
  Weight: 52.7 kg

DRUGS (12)
  1. EYE DROPS [Concomitant]
  2. GABAPENTIN [Concomitant]
     Dosage: 100MG THREE TIMES PER DAY
     Route: 048
  3. PREDNISONE [Concomitant]
     Dosage: 5MG PER DAY
     Route: 048
  4. ALPRAZOLAM [Concomitant]
     Dosage: .25MG THREE TIMES PER DAY
     Route: 048
  5. VALSARTAN [Concomitant]
     Dosage: 80MG TWICE PER DAY
     Route: 048
  6. ALBUTEROL SULFATE AND IPRATROPIUM BROMIDE [Concomitant]
     Dosage: 3ML FOUR TIMES PER DAY
     Route: 055
  7. HYDROCODONE BITARTRATE + ACETAMINOPHEN [Concomitant]
     Route: 048
  8. FUROSEMIDE [Concomitant]
     Dosage: 40MG AS REQUIRED
     Route: 048
  9. LANTUS [Concomitant]
     Dosage: 15UNIT TWICE PER DAY
     Route: 058
  10. TYKERB [Suspect]
     Indication: BREAST CANCER
     Dosage: 1000MG PER DAY
     Route: 048
     Dates: start: 20120112, end: 20120522
  11. HERCEPTIN [Concomitant]
     Route: 042
     Dates: start: 20120430
  12. HYPROMELLOSE [Concomitant]
     Route: 047

REACTIONS (2)
  - DRUG INEFFECTIVE [None]
  - DEATH [None]
